FAERS Safety Report 8936615 (Version 1)
Quarter: 2012Q4

REPORT INFORMATION
  Report Type: 
  Country: US (occurrence: US)
  Receive Date: 20121130
  Receipt Date: 20121130
  Transmission Date: 20130627
  Serious: Yes (Death)
  Sender: FDA-Public Use
  Company Number: US-ASTRAZENECA-2012SE89580

PATIENT
  Age: 80 Year
  Sex: Female

DRUGS (1)
  1. BRILINTA [Suspect]
     Indication: ACUTE CORONARY SYNDROME
     Route: 048

REACTIONS (3)
  - Death [Fatal]
  - Bradycardia [Recovered/Resolved]
  - Hypotension [Recovered/Resolved]
